FAERS Safety Report 21019567 (Version 1)
Quarter: 2022Q2

REPORT INFORMATION
  Report Type: Spontaneous
  Country: US (occurrence: US)
  Receive Date: 20220628
  Receipt Date: 20220628
  Transmission Date: 20220721
  Serious: No
  Sender: FDA-Public Use
  Company Number: US-SA-SAC20220627000536

PATIENT
  Age: 50 Year
  Sex: Female
  Weight: 123 kg

DRUGS (1)
  1. DUPIXENT [Suspect]
     Active Substance: DUPILUMAB
     Indication: Dermatitis atopic
     Dosage: 300 MG, QOW
     Route: 058
     Dates: start: 20210810, end: 20210810

REACTIONS (4)
  - COVID-19 [Unknown]
  - Nasal congestion [Unknown]
  - Pain [Unknown]
  - Fatigue [Unknown]
